FAERS Safety Report 20610764 (Version 1)
Quarter: 2022Q1

REPORT INFORMATION
  Report Type: Spontaneous
  Country: US (occurrence: None)
  Receive Date: 20220317
  Receipt Date: 20220317
  Transmission Date: 20220423
  Serious: Yes (Hospitalization)
  Sender: FDA-Public Use
  Company Number: None

PATIENT
  Age: 65 Year
  Sex: Male
  Weight: 175.95 kg

DRUGS (1)
  1. OCTAGAM IMMUNE GLOBULIN (HUMAN) [Suspect]
     Active Substance: HUMAN IMMUNOGLOBULIN G
     Indication: Chronic inflammatory demyelinating polyradiculoneuropathy
     Dosage: OTHER FREQUENCY : DIVIDED OVER 5 DAY;?
     Route: 042
     Dates: start: 20211220, end: 20220317

REACTIONS (4)
  - Infusion related reaction [None]
  - Mental status changes [None]
  - Cerebrovascular accident [None]
  - Confusional state [None]

NARRATIVE: CASE EVENT DATE: 20220219
